FAERS Safety Report 16540787 (Version 6)
Quarter: 2019Q4

REPORT INFORMATION
  Report Type: Report from Study
  Country: None (occurrence: AU)
  Receive Date: 20190708
  Receipt Date: 20191215
  Transmission Date: 20200122
  Serious: Yes (Hospitalization)
  Sender: FDA-Public Use
  Company Number: AU-ABBVIE-19K-008-2844157-00

PATIENT
  Age: 12 Year
  Sex: Female

DRUGS (1)
  1. HUMIRA [Suspect]
     Active Substance: ADALIMUMAB
     Indication: JUVENILE IDIOPATHIC ARTHRITIS
     Route: 058
     Dates: start: 20190617, end: 2019

REACTIONS (14)
  - Rash [Recovering/Resolving]
  - Swelling face [Recovering/Resolving]
  - Nasopharyngitis [Recovering/Resolving]
  - Streptococcal infection [Recovering/Resolving]
  - Ill-defined disorder [Unknown]
  - Pharyngeal erythema [Recovering/Resolving]
  - Lymphadenitis [Recovering/Resolving]
  - Erythema [Recovering/Resolving]
  - Wrong technique in product usage process [Unknown]
  - Strawberry tongue [Recovering/Resolving]
  - Vomiting [Recovering/Resolving]
  - Pyrexia [Recovering/Resolving]
  - Nausea [Recovering/Resolving]
  - Incorrect dose administered [Unknown]

NARRATIVE: CASE EVENT DATE: 2019
